FAERS Safety Report 9911565 (Version 3)
Quarter: 2014Q1

REPORT INFORMATION
  Report Type: Spontaneous
  Country: GB (occurrence: GB)
  Receive Date: 20140219
  Receipt Date: 20140324
  Transmission Date: 20141002
  Serious: Yes (Other)
  Sender: FDA-Public Use
  Company Number: PHFR2014GB001570

PATIENT
  Age: 28 Year
  Sex: Male
  Weight: 91 kg

DRUGS (4)
  1. CLOZARIL [Suspect]
     Indication: SCHIZOPHRENIA
     Dosage: 250 MG, DAILY
     Route: 048
     Dates: start: 20130109
  2. CLOZARIL [Suspect]
     Indication: PSYCHOTIC DISORDER
     Dosage: UNK
     Dates: start: 20130411
  3. FERROUS SULPHATE [Concomitant]
     Indication: ANAEMIA
     Dosage: 200 MG, BID
     Route: 048
  4. MOVICOL [Concomitant]
     Indication: CONSTIPATION
     Dosage: UNK UKN, PRN
     Route: 048

REACTIONS (5)
  - Oesophagitis ulcerative [Unknown]
  - Differential white blood cell count abnormal [Unknown]
  - Eosinophil count increased [Recovered/Resolved]
  - Heart rate increased [Unknown]
  - Anaemia [Unknown]
